FAERS Safety Report 5037171-2 (Version None)
Quarter: 2006Q2

REPORT INFORMATION
  Report Type: 
  Country: None (occurrence: None)
  Receive Date: 20060622
  Receipt Date: 20060612
  Transmission Date: 20061013
  Serious: Yes (Death)
  Sender: FDA-Public Use
  Company Number: 06H-163-0308476-00

PATIENT
  Age: 50 Year
  Sex: Female
  Weight: 122.4712 kg

DRUGS (1)
  1. MORPHINE SULFATE INJ [Suspect]
     Indication: PAIN MANAGEMENT
     Dosage: 2MG 10 MIN LOCKOUT, INTRAVENOUS
     Route: 042
     Dates: start: 20060523, end: 20060524

REACTIONS (1)
  - FAT EMBOLISM [None]
